FAERS Safety Report 5884281-3 (Version None)
Quarter: 2008Q3

REPORT INFORMATION
  Report Type: 
  Country: None (occurrence: None)
  Receive Date: 20080915
  Receipt Date: 20080908
  Transmission Date: 20090109
  Serious: Yes (Hospitalization)
  Sender: FDA-Public Use
  Company Number: US-GILEAD-2008-0018037

PATIENT
  Sex: Female
  Weight: 94.886 kg

DRUGS (10)
  1. LETAIRIS [Suspect]
     Indication: PULMONARY ARTERIAL HYPERTENSION
     Route: 048
  2. LISINOP/HCTZ [Concomitant]
     Dosage: 10-12.5
     Route: 048
  3. TRIGLIDE [Concomitant]
     Route: 048
  4. TORSEMIDE [Concomitant]
     Route: 048
  5. LIPITOR [Concomitant]
     Route: 048
  6. GLIPIZIDE [Concomitant]
     Route: 048
  7. AVANDAMET [Concomitant]
     Dosage: 2-500MG
     Route: 048
  8. SINGULAIR [Concomitant]
     Route: 048
  9. ASPIRIN [Concomitant]
  10. CENTRUM SILVER [Concomitant]
     Route: 048

REACTIONS (3)
  - BACK PAIN [None]
  - DRUG HYPERSENSITIVITY [None]
  - PNEUMONIA [None]
